FAERS Safety Report 4824760-0 (Version None)
Quarter: 2005Q4

REPORT INFORMATION
  Report Type: 
  Country: None (occurrence: None)
  Receive Date: 20051014
  Receipt Date: 20050811
  Transmission Date: 20060501
  Serious: No
  Sender: FDA-Public Use
  Company Number: 2005SP002313

PATIENT
  Age: 60 Year
  Sex: Female
  Weight: 61.6892 kg

DRUGS (1)
  1. LUNESTA [Suspect]
     Dosage: 2 MG;HS;ORAL
     Route: 048
     Dates: start: 20050810, end: 20050810

REACTIONS (10)
  - ABNORMAL BEHAVIOUR [None]
  - AGGRESSION [None]
  - AGITATION [None]
  - CHEST PAIN [None]
  - FEELING HOT AND COLD [None]
  - HYPERKINESIA [None]
  - INSOMNIA [None]
  - INTENTIONAL SELF-INJURY [None]
  - NAUSEA [None]
  - PRURITUS [None]
